FAERS Safety Report 4724315-2 (Version None)
Quarter: 2005Q3

REPORT INFORMATION
  Report Type: 
  Country: None (occurrence: None)
  Receive Date: 20050722
  Receipt Date: 20050708
  Transmission Date: 20060218
  Serious: Yes (Hospitalization)
  Sender: FDA-Public Use
  Company Number: 2005S1005931

PATIENT
  Age: 11 Year
  Sex: Male

DRUGS (1)
  1. MERCAPTAMINE BITARTRATE (MERCAPTAMINE BITARTRATE) (50 MG) [Suspect]
     Indication: CYSTINOSIS
     Dosage: 26 MG/KG; QD; PO
     Route: 048
     Dates: start: 19970925

REACTIONS (1)
  - REFLUX OESOPHAGITIS [None]
